FAERS Safety Report 14717848 (Version 7)
Quarter: 2018Q4

REPORT INFORMATION
  Report Type: Report from Study
  Country: US (occurrence: US)
  Receive Date: 20180404
  Receipt Date: 20181219
  Transmission Date: 20190204
  Serious: Yes (Hospitalization)
  Sender: FDA-Public Use
  Company Number: US-SA-2018SA032827

PATIENT
  Age: 55 Year
  Sex: Male

DRUGS (5)
  1. DUPILUMAB [Suspect]
     Active Substance: DUPILUMAB
     Indication: DERMATITIS ATOPIC
     Dosage: 600 MG,1X
     Route: 058
  2. DUPILUMAB [Suspect]
     Active Substance: DUPILUMAB
     Indication: PSORIASIS
     Dosage: 600 MG,1X
     Route: 058
     Dates: start: 20180122, end: 20180122
  3. DUPILUMAB [Suspect]
     Active Substance: DUPILUMAB
     Dosage: 300 MG, QOW
     Route: 058
     Dates: start: 20181209
  4. DUPILUMAB [Suspect]
     Active Substance: DUPILUMAB
     Indication: ECZEMA
     Dosage: 300 MG,QOW
     Route: 058
     Dates: start: 20180119
  5. DUPILUMAB [Suspect]
     Active Substance: DUPILUMAB
     Dosage: 300 MG,QOW
     Route: 058
     Dates: start: 20180723, end: 20181202

REACTIONS (27)
  - Tibia fracture [Recovered/Resolved]
  - Blister [Not Recovered/Not Resolved]
  - Intervertebral disc compression [Recovered/Resolved]
  - Condition aggravated [Recovering/Resolving]
  - Rhinorrhoea [Unknown]
  - Rhinorrhoea [Unknown]
  - Spinal disorder [Recovered/Resolved]
  - Abdominal pain upper [Recovered/Resolved]
  - Abdominal distension [Recovered/Resolved]
  - Rotator cuff syndrome [Not Recovered/Not Resolved]
  - Product dose omission [Recovered/Resolved]
  - Rash [Unknown]
  - Condition aggravated [Recovered/Resolved]
  - Skin discolouration [Recovered/Resolved]
  - Malaise [Unknown]
  - Injection site irritation [Unknown]
  - Therapeutic response decreased [Unknown]
  - Stress [Unknown]
  - Excessive exercise [Unknown]
  - Road traffic accident [Unknown]
  - Lower limb fracture [Recovered/Resolved]
  - Haematoma [Recovered/Resolved]
  - Hypoaesthesia [Recovered/Resolved]
  - Gastrointestinal disorder [Unknown]
  - Eye irritation [Unknown]
  - Contusion [Unknown]
  - Headache [Unknown]

NARRATIVE: CASE EVENT DATE: 2018
